FAERS Safety Report 21290418 (Version 1)
Quarter: 2022Q3

REPORT INFORMATION
  Report Type: Report from Study
  Country: CA (occurrence: CA)
  Receive Date: 20220902
  Receipt Date: 20220902
  Transmission Date: 20221027
  Serious: Yes (Other)
  Sender: FDA-Public Use
  Company Number: CA-GILEAD-2021-0562935

PATIENT
  Age: 78 Year
  Sex: Female
  Weight: 56.236 kg

DRUGS (28)
  1. SACITUZUMAB GOVITECAN [Suspect]
     Active Substance: SACITUZUMAB GOVITECAN
     Indication: Triple negative breast cancer
     Dosage: 471 MG
     Route: 042
     Dates: start: 20211216
  2. SACITUZUMAB GOVITECAN [Suspect]
     Active Substance: SACITUZUMAB GOVITECAN
     Dosage: 471 MG
     Route: 042
     Dates: start: 20220108, end: 20220108
  3. SACITUZUMAB GOVITECAN [Suspect]
     Active Substance: SACITUZUMAB GOVITECAN
     Dosage: 458 MG
     Route: 042
     Dates: start: 20211216
  4. SACITUZUMAB GOVITECAN [Suspect]
     Active Substance: SACITUZUMAB GOVITECAN
     Dosage: 471 MG
     Route: 042
  5. SACITUZUMAB GOVITECAN [Suspect]
     Active Substance: SACITUZUMAB GOVITECAN
     Dosage: 462 MG
     Route: 042
  6. SACITUZUMAB GOVITECAN [Suspect]
     Active Substance: SACITUZUMAB GOVITECAN
     Dosage: 459 MG
     Route: 042
     Dates: start: 20211216
  7. DECADRON [Suspect]
     Active Substance: DEXAMETHASONE
     Indication: Premedication
     Dosage: 18 MG ORAL (PRE-MEDICATION PRIOR TO TRODELVY)
     Route: 048
  8. DECADRON [Suspect]
     Active Substance: DEXAMETHASONE
     Dosage: 8 MG ORAL (PRE-MEDICATION PRIOR TO TRODELVY)
     Route: 048
  9. DECADRON [Suspect]
     Active Substance: DEXAMETHASONE
     Dosage: 6 MG  (PRE-MEDICATION PRIOR TO TRODELVY)
     Route: 048
  10. ONDANSETRON [Concomitant]
     Active Substance: ONDANSETRON
     Indication: Premedication
     Dosage: 8 MG (PRE-MEDICATION PRIOR TO TRODELVY)
     Route: 048
  11. ONDANSETRON [Concomitant]
     Active Substance: ONDANSETRON
     Dosage: 8 MG PO (PRE-MEDICATION PRIOR TO TRODELVY)
  12. ONDANSETRON [Concomitant]
     Active Substance: ONDANSETRON
     Dosage: 8 MG PO (PRE-MEDICATION PRIOR TO TRODELVY)
  13. ONDANSETRON [Concomitant]
     Active Substance: ONDANSETRON
     Dosage: 8 MG PO
  14. ONDANSETRON [Concomitant]
     Active Substance: ONDANSETRON
     Dosage: 8 MG PO (PRE-MEDICATION PRIOR TO TRODELVY)
  15. ONDANSETRON [Concomitant]
     Active Substance: ONDANSETRON
     Dosage: 8 MG PO (PRE-MEDICATION PRIOR TO TRODELVY)
  16. ONDANSETRON [Concomitant]
     Active Substance: ONDANSETRON
     Dosage: 8 MG PO (PRE-MEDICATION PRIOR TO TRODELVY)
  17. ONDANSETRON [Concomitant]
     Active Substance: ONDANSETRON
     Dosage: 8 MG PO (PRE-MEDICATION PRIOR TO TRODELVY)
  18. ONDANSETRON [Concomitant]
     Active Substance: ONDANSETRON
     Dosage: 8 MG PO (PRE-MEDICATION PRIOR TO TRODELVY)
  19. ONDANSETRON [Concomitant]
     Active Substance: ONDANSETRON
     Dosage: 8 MG PO (PRE-MEDICATION PRIOR TO TRODELVY)
  20. ONDANSETRON [Concomitant]
     Active Substance: ONDANSETRON
     Dosage: 8 MG ORAL (PRE-MEDICATION PRIOR TO TRODELVY)
  21. ONDANSETRON [Concomitant]
     Active Substance: ONDANSETRON
     Dosage: 8 MG PO (PRE-MEDICATION PRIOR TO TRODELVY)
  22. ONDANSETRON [Concomitant]
     Active Substance: ONDANSETRON
     Dosage: 8 MG PO (PRE-MEDICATION PRIOR TO TRODELVY)
  23. ONDANSETRON [Concomitant]
     Active Substance: ONDANSETRON
     Dosage: 8 MG PO (PRE-MEDICATION PRIOR TO TRODELVY)
  24. ONDANSETRON [Concomitant]
     Active Substance: ONDANSETRON
     Dosage: 8 MG PO (PRE-MEDICATION PRIOR TO TRODELVY)
  25. ONDANSETRON [Concomitant]
     Active Substance: ONDANSETRON
     Dosage: 8 MG PO (PRE-MEDICATION PRIOR TO TRODELVY)
  26. ONDANSETRON [Concomitant]
     Active Substance: ONDANSETRON
     Dosage: 8 MG PO (PRE-MEDICATION PRIOR TO TRODELVY)
  27. ONDANSETRON [Concomitant]
     Active Substance: ONDANSETRON
     Dosage: 8 MG PO (PRE-MEDICATION PRIOR TO TRODELVY)
  28. VITAMINS NOS [Concomitant]
     Active Substance: VITAMINS

REACTIONS (69)
  - Disease progression [Not Recovered/Not Resolved]
  - Pleural effusion [Unknown]
  - Weight decreased [Not Recovered/Not Resolved]
  - Dizziness [Recovered/Resolved]
  - Diarrhoea [Unknown]
  - Dehydration [Recovered/Resolved]
  - Hypotension [Not Recovered/Not Resolved]
  - Blood glucose abnormal [Unknown]
  - Malaise [Unknown]
  - Hypophagia [Recovered/Resolved]
  - Mobility decreased [Recovering/Resolving]
  - Temperature regulation disorder [Unknown]
  - Device malfunction [Unknown]
  - Arthralgia [Unknown]
  - Scar [Unknown]
  - Dyspnoea [Unknown]
  - Pain of skin [Unknown]
  - Alopecia [Unknown]
  - Drug hypersensitivity [Unknown]
  - Illness [Unknown]
  - Dehydration [Unknown]
  - Fatigue [Unknown]
  - Hypophagia [Recovering/Resolving]
  - Fluid intake reduced [Recovering/Resolving]
  - Sopor [Unknown]
  - Asthenia [Recovering/Resolving]
  - Ill-defined disorder [Not Recovered/Not Resolved]
  - Constipation [Not Recovered/Not Resolved]
  - Weight increased [Unknown]
  - Fatigue [Not Recovered/Not Resolved]
  - Diarrhoea [Recovered/Resolved]
  - Hypertension [Recovered/Resolved]
  - Insomnia [Unknown]
  - Unevaluable event [Recovered/Resolved]
  - Hypertension [Recovered/Resolved]
  - Malaise [Unknown]
  - Pain [Unknown]
  - Asthenia [Unknown]
  - Chest pain [Unknown]
  - Unevaluable event [Not Recovered/Not Resolved]
  - Ill-defined disorder [Not Recovered/Not Resolved]
  - Pain [Not Recovered/Not Resolved]
  - Dyspnoea [Not Recovered/Not Resolved]
  - Diarrhoea [Recovered/Resolved]
  - Hair growth abnormal [Unknown]
  - Muscle disorder [Not Recovered/Not Resolved]
  - Weight increased [Unknown]
  - Spinal pain [Unknown]
  - Diarrhoea [Recovered/Resolved]
  - Pain [Not Recovered/Not Resolved]
  - Discomfort [Not Recovered/Not Resolved]
  - Ill-defined disorder [Unknown]
  - Hypertension [Unknown]
  - Investigation abnormal [Not Recovered/Not Resolved]
  - Heart rate increased [Unknown]
  - Hypoaesthesia [Not Recovered/Not Resolved]
  - Paraesthesia [Unknown]
  - Mobility decreased [Unknown]
  - Mobility decreased [Unknown]
  - Back pain [Recovered/Resolved]
  - Weight decreased [Unknown]
  - Weight fluctuation [Unknown]
  - Diarrhoea [Recovering/Resolving]
  - Inappropriate schedule of product administration [Recovered/Resolved]
  - Malaise [Unknown]
  - Weight decreased [Unknown]
  - Pain [Unknown]
  - Discomfort [Unknown]
  - Asthenia [Not Recovered/Not Resolved]

NARRATIVE: CASE EVENT DATE: 20211216
